FAERS Safety Report 9934010 (Version 1)
Quarter: 2014Q1

REPORT INFORMATION
  Report Type: Spontaneous
  Country: US (occurrence: US)
  Receive Date: 20140228
  Receipt Date: 20140228
  Transmission Date: 20141002
  Serious: No
  Sender: FDA-Public Use
  Company Number: US-ABBVIE-13P-163-1179365-00

PATIENT
  Age: 48 Year
  Sex: Male
  Weight: 79.45 kg

DRUGS (12)
  1. ANDROGEL [Suspect]
     Indication: BLOOD TESTOSTERONE DECREASED
     Route: 061
     Dates: start: 20131210
  2. OLANZAPINE [Concomitant]
     Indication: POST-TRAUMATIC STRESS DISORDER
  3. HYDROCODONE [Concomitant]
     Indication: PAIN
  4. PROVENTIL [Concomitant]
     Indication: DYSPNOEA
  5. CYCLOBENZAPRINE [Concomitant]
     Indication: PAIN
  6. CYCLOBENZAPRINE [Concomitant]
     Indication: RESTLESS LEGS SYNDROME
  7. AMITRIPTYLINE [Concomitant]
     Indication: RESTLESS LEGS SYNDROME
  8. TAMSULOSIN [Concomitant]
     Indication: NEPHROLITHIASIS
  9. VITAMIN B12 [Concomitant]
     Indication: VITAMIN SUPPLEMENTATION
  10. VITAMIN D3 [Concomitant]
     Indication: VITAMIN SUPPLEMENTATION
  11. HCTZ [Concomitant]
     Indication: NEPHROLITHIASIS
  12. SILDENA [Concomitant]
     Indication: ERECTILE DYSFUNCTION

REACTIONS (1)
  - Application site pruritus [Not Recovered/Not Resolved]
